FAERS Safety Report 6230352-1 (Version None)
Quarter: 2009Q2

REPORT INFORMATION
  Report Type: 
  Country: None (occurrence: None)
  Receive Date: 20090611
  Receipt Date: 20090604
  Transmission Date: 20091009
  Serious: Yes (Hospitalization)
  Sender: FDA-Public Use
  Company Number: GXKR2009KR06568

PATIENT
  Age: 51 Year
  Sex: Male

DRUGS (5)
  1. METFORMIN HCL [Suspect]
     Indication: BLOOD GLUCOSE INCREASED
     Dosage: 850 MG, DAILY, UNKNOWN
  2. INSULIN (INSULIN) [Concomitant]
  3. AMLODIPINE BESYLATE [Concomitant]
  4. ASPIRIN [Concomitant]
  5. VITAMIN NOS (VITAMIN NOS) [Concomitant]

REACTIONS (3)
  - CENTRAL NERVOUS SYSTEM LESION [None]
  - ENCEPHALOPATHY [None]
  - INTRACRANIAL PRESSURE INCREASED [None]
